FAERS Safety Report 25120047 (Version 1)
Quarter: 2025Q1

REPORT INFORMATION
  Report Type: Spontaneous
  Country: JP (occurrence: JP)
  Receive Date: 20250325
  Receipt Date: 20250325
  Transmission Date: 20250409
  Serious: Yes (Other)
  Sender: ABBVIE
  Company Number: JP-ABBVIE-6195548

PATIENT
  Age: 83 Year
  Sex: Female

DRUGS (3)
  1. LUMIGAN [Suspect]
     Active Substance: BIMATOPROST
     Indication: Glaucoma
     Route: 047
     Dates: start: 20210602, end: 20250304
  2. BRIMONIDINE TARTRATE\BRINZOLAMIDE [Suspect]
     Active Substance: BRIMONIDINE TARTRATE\BRINZOLAMIDE
     Indication: Glaucoma
     Route: 047
     Dates: start: 20210602, end: 20250304
  3. RIPASUDIL HYDROCHLORIDE DIHYDRATE [Concomitant]
     Active Substance: RIPASUDIL HYDROCHLORIDE DIHYDRATE
     Indication: Glaucoma
     Route: 047
     Dates: start: 20231119, end: 20250304

REACTIONS (3)
  - Corneal opacity [Not Recovered/Not Resolved]
  - Conjunctival hyperaemia [Not Recovered/Not Resolved]
  - Keratic precipitates [Not Recovered/Not Resolved]

NARRATIVE: CASE EVENT DATE: 20240205
